FAERS Safety Report 5347297-1 (Version None)
Quarter: 2007Q2

REPORT INFORMATION
  Report Type: 
  Country: None (occurrence: None)
  Receive Date: 20070606
  Receipt Date: 20070524
  Transmission Date: 20071010
  Serious: Yes (Other)
  Sender: FDA-Public Use
  Company Number: PHBS2007ZA08612

PATIENT
  Age: 17 Year
  Sex: Male

DRUGS (1)
  1. RITALIN LA [Suspect]
     Route: 048

REACTIONS (1)
  - EPILEPSY [None]
